FAERS Safety Report 7573571-4 (Version None)
Quarter: 2011Q2

REPORT INFORMATION
  Report Type: 
  Country: None (occurrence: None)
  Receive Date: 20110627
  Receipt Date: 20110616
  Transmission Date: 20111010
  Serious: Yes (Other)
  Sender: FDA-Public Use
  Company Number: CA-US-EMD SERONO, INC.-7036328

PATIENT
  Sex: Female

DRUGS (2)
  1. REBIF [Suspect]
     Route: 058
  2. REBIF [Suspect]
     Indication: RELAPSING-REMITTING MULTIPLE SCLEROSIS
     Dates: start: 20110110

REACTIONS (14)
  - INAPPROPRIATE SCHEDULE OF DRUG ADMINISTRATION [None]
  - HYPOAESTHESIA FACIAL [None]
  - PANIC ATTACK [None]
  - GENERAL PHYSICAL HEALTH DETERIORATION [None]
  - WRONG TECHNIQUE IN DRUG USAGE PROCESS [None]
  - CONFUSIONAL STATE [None]
  - ANXIETY [None]
  - INJECTION SITE ERYTHEMA [None]
  - INFLUENZA LIKE ILLNESS [None]
  - PALLOR [None]
  - LOSS OF CONSCIOUSNESS [None]
  - FEAR [None]
  - WEIGHT DECREASED [None]
  - HYPOAESTHESIA [None]
